FAERS Safety Report 11131242 (Version 3)
Quarter: 2015Q2

REPORT INFORMATION
  Report Type: Spontaneous
  Country: DE (occurrence: DE)
  Receive Date: 20150522
  Receipt Date: 20150626
  Transmission Date: 20150821
  Serious: Yes (Death, Hospitalization)
  Sender: FDA-Public Use
  Company Number: DE-AMGEN-DEUSP2015049190

PATIENT
  Age: 69 Year
  Sex: Male
  Weight: 54 kg

DRUGS (11)
  1. DOXORUBICINE                       /00330901/ [Suspect]
     Active Substance: DOXORUBICIN
     Indication: B-CELL LYMPHOMA
     Dosage: 86 MILLIGRAMS, 1 TIME IN 2 WEEKS FOR 99 DAYS
     Route: 042
     Dates: start: 20141203, end: 20150311
  2. VINCRISTINE [Suspect]
     Active Substance: VINCRISTINE
     Indication: B-CELL LYMPHOMA
     Dosage: 3.44 MILLIGRAMS, 1 TIME IN 2 WEEKS FOR 99 DAYS
     Route: 042
     Dates: start: 20141203, end: 20150311
  3. METFORMIN [Concomitant]
     Active Substance: METFORMIN HYDROCHLORIDE
     Indication: DIABETES MELLITUS
     Dosage: 1700 MILLIGRAMS, 1 TIME A DAY
     Route: 048
  4. RITUXIMAB [Suspect]
     Active Substance: RITUXIMAB
     Indication: B-CELL LYMPHOMA
     Dosage: 645 MILLIGRAMS, 1 TIMES IN 2 WEEKS FOR 133 DAYS
     Route: 042
     Dates: start: 20141202, end: 20150413
  5. PREDNISONE. [Suspect]
     Active Substance: PREDNISONE
     Indication: B-CELL LYMPHOMA
     Dosage: 100 MILLIGRAMS, 5 DAYS A CYCLE FOR 103 DAYS
     Route: 048
     Dates: start: 20141203, end: 20150315
  6. NALOXONE W/TILIDINE [Concomitant]
     Indication: PAIN
     Dosage: 100/8MG DAILY
     Route: 048
  7. PEGFILGRASTIM [Suspect]
     Active Substance: PEGFILGRASTIM
     Indication: B-CELL LYMPHOMA
     Dosage: 6 MILLIGRAMS, 1 TIME IN 2 WEEKS FOR 100 DAYS
     Route: 058
     Dates: start: 20141205, end: 20150314
  8. PANTOPRAZOLE SODIUM. [Concomitant]
     Active Substance: PANTOPRAZOLE SODIUM
     Indication: PROPHYLAXIS
     Dosage: 40 MILLIGRAMS, 1 TIME A DAY
     Route: 048
  9. CYCLOPHOSPHAMIDE. [Suspect]
     Active Substance: CYCLOPHOSPHAMIDE
     Indication: B-CELL LYMPHOMA
     Dosage: 1290 MILLIGRAMS, 1 TIME IN 2 WEEKS FOR 133 DAYS
     Route: 042
     Dates: start: 20141202, end: 20150413
  10. SITAGLIPTIN [Concomitant]
     Active Substance: SITAGLIPTIN
     Indication: DIABETES MELLITUS
     Dosage: 100 MILLIGRAMS, 1 TIME A DAY
     Route: 048
  11. METAMIZOLE SODIUM [Concomitant]
     Active Substance: METAMIZOLE SODIUM
     Indication: PAIN
     Dosage: 120GTT DROP, 1 TIME A DAY
     Route: 048
     Dates: start: 20141202

REACTIONS (5)
  - Pancreatic carcinoma [Fatal]
  - Anaemia of malignant disease [Not Recovered/Not Resolved]
  - Pneumonia [Not Recovered/Not Resolved]
  - General physical health deterioration [Not Recovered/Not Resolved]
  - Pain [Not Recovered/Not Resolved]

NARRATIVE: CASE EVENT DATE: 20150429
